FAERS Safety Report 7584306-3 (Version None)
Quarter: 2011Q2

REPORT INFORMATION
  Report Type: 
  Country: None (occurrence: None)
  Receive Date: 20110630
  Receipt Date: 20110611
  Transmission Date: 20111010
  Serious: Yes (Other)
  Sender: FDA-Public Use
  Company Number: ES-PFIZER INC-2011145284

PATIENT
  Age: 68 Year
  Sex: Male

DRUGS (4)
  1. DIAZEPAM [Concomitant]
     Indication: BACK PAIN
     Dosage: UNK
  2. PANTOPRAZOLE [Suspect]
     Indication: BACK PAIN
     Dosage: UNK
     Route: 065
  3. DICLOFENAC [Concomitant]
     Indication: BACK PAIN
     Dosage: UNK
  4. OMEPRAZOLE [Suspect]
     Indication: BACK PAIN
     Route: 065

REACTIONS (4)
  - PRURITUS GENERALISED [None]
  - PYREXIA [None]
  - DERMATITIS EXFOLIATIVE [None]
  - RASH ERYTHEMATOUS [None]
